FAERS Safety Report 8904143 (Version 1)
Quarter: 2012Q4

REPORT INFORMATION
  Report Type: 
  Country: US (occurrence: US)
  Receive Date: 20121113
  Receipt Date: 20121113
  Transmission Date: 20130627
  Serious: Yes (Death)
  Sender: FDA-Public Use
  Company Number: US-INCYTE CORPORATION-2012IN002285

PATIENT
  Age: 67 Year
  Sex: Female
  Weight: 45.81 kg

DRUGS (1)
  1. JAKAFI [Suspect]
     Indication: MYELOFIBROSIS
     Dosage: 20 mg, Q12h
     Route: 048
     Dates: start: 20120227, end: 20121012

REACTIONS (1)
  - Death [Fatal]
